FAERS Safety Report 9039495 (Version 1)
Quarter: 2013Q1

REPORT INFORMATION
  Report Type: Spontaneous
  Country: US (occurrence: US)
  Receive Date: 20130129
  Receipt Date: 20130129
  Transmission Date: 20140127
  Serious: Yes (Other)
  Sender: FDA-Public Use
  Company Number: US-ELI_LILLY_AND_COMPANY-US201301002351

PATIENT
  Sex: Female

DRUGS (9)
  1. CYMBALTA [Suspect]
     Indication: DEPRESSION
     Dosage: 60 MG, UNK
  2. CYMBALTA [Suspect]
     Dosage: 90 MG, UNK
  3. CYMBALTA [Suspect]
     Dosage: 30 MG, QD
  4. CYMBALTA [Suspect]
     Dosage: 30 MG, QOD
  5. LOSARTAN [Concomitant]
     Dosage: 100 MG, UNK
  6. TYLENOL                                 /SCH/ [Concomitant]
  7. CLONAZEPAM [Concomitant]
  8. NIACIN [Concomitant]
     Dosage: 500 MG, UNK
  9. VYTORIN [Concomitant]

REACTIONS (10)
  - Open fracture [Unknown]
  - Head injury [Unknown]
  - Fall [Not Recovered/Not Resolved]
  - Anxiety [Unknown]
  - Gastric disorder [Unknown]
  - Drug ineffective [Unknown]
  - Depression [Unknown]
  - Crying [Unknown]
  - Back pain [Unknown]
  - Fatigue [Unknown]
